FAERS Safety Report 10270232 (Version 1)
Quarter: 2014Q3

REPORT INFORMATION
  Report Type: Spontaneous
  Country: US (occurrence: US)
  Receive Date: 20140701
  Receipt Date: 20140701
  Transmission Date: 20150326
  Serious: Yes (Hospitalization, Other)
  Sender: FDA-Public Use
  Company Number: US-ELI_LILLY_AND_COMPANY-US201406006896

PATIENT
  Sex: Male

DRUGS (3)
  1. LANTUS [Concomitant]
     Active Substance: INSULIN GLARGINE
     Dosage: 26 U, EACH EVENING
  2. METFORMIN [Concomitant]
     Active Substance: METFORMIN HYDROCHLORIDE
  3. HUMALOG [Suspect]
     Active Substance: INSULIN LISPRO
     Indication: DIABETES MELLITUS
     Dosage: UNK, TID
     Route: 065

REACTIONS (10)
  - Dyspnoea [Unknown]
  - Chronic myeloid leukaemia [Unknown]
  - Retinal haemorrhage [Unknown]
  - Renal injury [Unknown]
  - Incorrect dose administered [Unknown]
  - Accident at work [Unknown]
  - Localised infection [Unknown]
  - Neuropathy peripheral [Unknown]
  - Visual acuity reduced [Unknown]
  - Blood glucose increased [Recovering/Resolving]
